FAERS Safety Report 7716270-8 (Version None)
Quarter: 2011Q3

REPORT INFORMATION
  Report Type: 
  Country: None (occurrence: None)
  Receive Date: 20110815
  Receipt Date: 20110620
  Transmission Date: 20111222
  Serious: Yes (Other)
  Sender: FDA-Public Use
  Company Number: 11-000701

PATIENT
  Age: 40 Year
  Sex: Female
  Weight: 48.5 kg

DRUGS (5)
  1. ZYRTEC [Concomitant]
  2. CRESTOR [Concomitant]
  3. LO LOESTRIN FE [Suspect]
     Indication: ENDOMETRIOSIS
     Dosage: 10/1000 UG, QD, ORAL
     Route: 048
     Dates: start: 20110501
  4. LOESTRIN 21 1/20 [Suspect]
     Indication: ENDOMETRIOSIS
     Dosage: 20/1000 UG, QD, ORAL
     Route: 048
     Dates: start: 20090301, end: 20101001
  5. ONE-A-DAY (ASCORBIC ACID, CYANOCOBALAMIN, ERGOCALCIFEROL, NICOTINAMIDE [Concomitant]

REACTIONS (11)
  - ALOPECIA [None]
  - BENIGN BREAST NEOPLASM [None]
  - OCULAR ICTERUS [None]
  - HAIR TEXTURE ABNORMAL [None]
  - BREAST OEDEMA [None]
  - VISUAL ACUITY REDUCED [None]
  - SKIN DISCOLOURATION [None]
  - MYALGIA [None]
  - YELLOW SKIN [None]
  - OFF LABEL USE [None]
  - BREAST TENDERNESS [None]
